FAERS Safety Report 16781681 (Version 2)
Quarter: 2019Q4

REPORT INFORMATION
  Report Type: Spontaneous
  Country: CN (occurrence: CN)
  Receive Date: 20190906
  Receipt Date: 20191202
  Transmission Date: 20200122
  Serious: Yes (Other)
  Sender: FDA-Public Use
  Company Number: CN-ASTRAZENECA-2019SF25993

PATIENT
  Age: 1345 Day
  Sex: Male
  Weight: 17 kg

DRUGS (14)
  1. BRICANYL [Suspect]
     Active Substance: TERBUTALINE SULFATE
     Indication: COUGH
     Dosage: 1ML, 0.5 DAYS, INHALATION
     Route: 055
     Dates: start: 20190801, end: 20190806
  2. AMBROXOL HYDROCHLORIDE [Suspect]
     Active Substance: AMBROXOL HYDROCHLORIDE
     Indication: PRODUCTIVE COUGH
     Dosage: 1 ML, 0.5 DAYS
     Route: 041
     Dates: start: 20190802, end: 20190806
  3. CEFTRIAXONE. [Suspect]
     Active Substance: CEFTRIAXONE
     Indication: PNEUMONIA
     Dosage: 0.5 DAYS
     Route: 041
     Dates: start: 20190801, end: 20190807
  4. PULMICORT RESPULES [Suspect]
     Active Substance: BUDESONIDE
     Indication: PNEUMONIA
     Dosage: 0.5 DAYS, INHALATION
     Route: 055
     Dates: start: 20190801, end: 20190806
  5. METHYLPREDNISOLONE SODIUM SUCCINATE. [Concomitant]
     Active Substance: METHYLPREDNISOLONE SODIUM SUCCINATE
     Indication: PNEUMONIA
     Dosage: 15 ML, 0.5 DAYS
     Route: 041
     Dates: start: 20190802, end: 20190808
  6. METHYLPREDNISOLONE SODIUM SUCCINATE. [Concomitant]
     Active Substance: METHYLPREDNISOLONE SODIUM SUCCINATE
     Indication: PYREXIA
     Dosage: 15 ML, 0.5 DAYS
     Route: 041
     Dates: start: 20190802, end: 20190808
  7. PULMICORT RESPULES [Suspect]
     Active Substance: BUDESONIDE
     Indication: COUGH
     Dosage: 0.5 DAYS, INHALATION
     Route: 055
     Dates: start: 20190801, end: 20190806
  8. AMBROXOL HYDROCHLORIDE [Suspect]
     Active Substance: AMBROXOL HYDROCHLORIDE
     Indication: PNEUMONIA
     Dosage: 1 ML, 0.5 DAYS
     Route: 041
     Dates: start: 20190802, end: 20190806
  9. AMBROXOL HYDROCHLORIDE [Suspect]
     Active Substance: AMBROXOL HYDROCHLORIDE
     Indication: COUGH
     Dosage: 1 ML, 0.5 DAYS
     Route: 041
     Dates: start: 20190802, end: 20190806
  10. ZAMBON (ACETYLCYSTEINE) [Suspect]
     Active Substance: ACETYLCYSTEINE
     Indication: PNEUMONIA
     Route: 055
  11. METHYLPREDNISOLONE SODIUM SUCCINATE. [Concomitant]
     Active Substance: METHYLPREDNISOLONE SODIUM SUCCINATE
     Indication: INFECTION
     Dosage: 15 ML, 0.5 DAYS
     Route: 041
     Dates: start: 20190802, end: 20190808
  12. BRICANYL [Suspect]
     Active Substance: TERBUTALINE SULFATE
     Indication: PNEUMONIA
     Dosage: 1ML, 0.5 DAYS, INHALATION
     Route: 055
     Dates: start: 20190801, end: 20190806
  13. ZAMBON (ACETYLCYSTEINE) [Suspect]
     Active Substance: ACETYLCYSTEINE
     Indication: PNEUMONIA
     Dosage: 0.5 DAYS
     Route: 055
     Dates: start: 20190804, end: 20190805
  14. CEFTRIAXONE. [Suspect]
     Active Substance: CEFTRIAXONE
     Indication: INFECTION
     Dosage: 0.5 DAYS
     Route: 041
     Dates: start: 20190801, end: 20190807

REACTIONS (1)
  - Drug eruption [Recovering/Resolving]

NARRATIVE: CASE EVENT DATE: 20190805
